FAERS Safety Report 8209801-5 (Version None)
Quarter: 2012Q1

REPORT INFORMATION
  Report Type: 
  Country: None (occurrence: None)
  Receive Date: 20120314
  Receipt Date: 20120312
  Transmission Date: 20120608
  Serious: Yes (Other)
  Sender: FDA-Public Use
  Company Number: US-PFIZER INC-2012065324

PATIENT
  Sex: Male
  Weight: 97.506 kg

DRUGS (8)
  1. BISOPROLOL [Concomitant]
     Indication: HYPERTENSION
     Dosage: UNK
  2. ENALAPRIL [Concomitant]
     Indication: HYPERTENSION
     Dosage: UNK
  3. LORAZEPAM [Concomitant]
     Indication: ANXIETY
     Dosage: UNK
  4. HYDROCODONE BITARTRATE AND IBUPROFEN [Concomitant]
     Dosage: UNK
  5. BISOPROLOL FUMARATE AND HYDROCHLOROTHIAZIDE [Concomitant]
     Indication: HYPERTENSION
     Dosage: UNK
  6. NEURONTIN [Suspect]
     Indication: PARAESTHESIA
  7. NEURONTIN [Suspect]
     Indication: HYPOAESTHESIA
     Dosage: 300 MG, 3X/DAY
     Route: 048
     Dates: start: 20100101, end: 20110101
  8. ALBUTEROL [Concomitant]
     Dosage: UNK

REACTIONS (2)
  - INTERVERTEBRAL DISC PROTRUSION [None]
  - INTERVERTEBRAL DISC INJURY [None]
